FAERS Safety Report 9531397 (Version 1)
Quarter: 2013Q2

REPORT INFORMATION
  Report Type: Spontaneous
  Country: US (occurrence: None)
  Receive Date: 20130410
  Receipt Date: 20130410
  Transmission Date: 20140414
  Serious: Yes (Other)
  Sender: FDA-Public Use
  Company Number: AUR-APL-2012-02222

PATIENT
  Age: 64 Year
  Sex: Male

DRUGS (3)
  1. LISINOPRIL [Suspect]
     Indication: HYPERTENSION
     Route: 048
     Dates: start: 201104
  2. DILTIAZEM [Suspect]
     Indication: HYPERTENSION
     Dosage: 240 MG (120 MG, 2 IN 1 D), ORAL
     Dates: start: 201102
  3. CIALIS (TADALAFIL) [Concomitant]

REACTIONS (1)
  - Erectile dysfunction [None]
